FAERS Safety Report 12425190 (Version 6)
Quarter: 2016Q3

REPORT INFORMATION
  Report Type: Report from Study
  Country: US (occurrence: US)
  Receive Date: 20160601
  Receipt Date: 20160826
  Transmission Date: 20161109
  Serious: Yes (Hospitalization, Other)
  Sender: FDA-Public Use
  Company Number: US-ACTELION-A-NJ2016-136741

PATIENT
  Age: 69 Year
  Sex: Female

DRUGS (6)
  1. TREPROSTINIL DIOLAMIN [Suspect]
     Active Substance: TREPROSTINIL DIOLAMINE
     Dosage: 2.5 MG, UNK
     Route: 065
     Dates: start: 20160605
  2. OPSUMIT [Suspect]
     Active Substance: MACITENTAN
     Indication: PULMONARY ARTERIAL HYPERTENSION
     Dosage: 10 MG, QD
     Route: 048
     Dates: start: 20150625
  3. SILDENAFIL. [Concomitant]
     Active Substance: SILDENAFIL
  4. TREPROSTINIL DIOLAMIN [Suspect]
     Active Substance: TREPROSTINIL DIOLAMINE
     Indication: PRODUCT USED FOR UNKNOWN INDICATION
     Dosage: 2.25 MG, UNK
     Route: 065
     Dates: start: 20160601
  5. TREPROSTINIL DIOLAMIN [Suspect]
     Active Substance: TREPROSTINIL DIOLAMINE
     Route: 065
  6. REVATIO [Concomitant]
     Active Substance: SILDENAFIL CITRATE

REACTIONS (14)
  - Flushing [Unknown]
  - Headache [Unknown]
  - Duodenal neoplasm [Recovering/Resolving]
  - Small intestinal obstruction [Recovering/Resolving]
  - Eructation [Unknown]
  - Abdominal distension [Unknown]
  - Diarrhoea [Unknown]
  - Polypectomy [Unknown]
  - Polyp [Unknown]
  - Back pain [Recovered/Resolved]
  - Malaise [Unknown]
  - Gastrointestinal surgery [Recovering/Resolving]
  - Rash pruritic [Unknown]
  - Peripheral swelling [Unknown]

NARRATIVE: CASE EVENT DATE: 20160601
